FAERS Safety Report 9931714 (Version 2)
Quarter: 2014Q1

REPORT INFORMATION
  Report Type: Spontaneous
  Country: DE (occurrence: DE)
  Receive Date: 20140228
  Receipt Date: 20140313
  Transmission Date: 20141002
  Serious: Yes (Hospitalization, Other)
  Sender: FDA-Public Use
  Company Number: DE-JNJFOC-20140212341

PATIENT
  Age: 60 Year
  Sex: Male

DRUGS (16)
  1. FENTANYL TTS [Suspect]
     Indication: ABDOMINAL PAIN
     Route: 062
  2. FENTANYL TTS [Suspect]
     Indication: ABDOMINAL PAIN
     Route: 062
  3. FENTANYL [Suspect]
     Indication: ABDOMINAL PAIN
     Dosage: 8 TO 20 TIMES DAILY
     Route: 045
  4. PREGABALIN [Concomitant]
     Indication: ANALGESIC THERAPY
     Route: 065
  5. GABAPENTIN [Concomitant]
     Indication: ANALGESIC THERAPY
     Dosage: 300 MG AT MORNING, 300 MG AT NOON AND 600 MG AT NIGHT
     Route: 065
  6. BACLOFEN [Concomitant]
     Indication: PSYCHOTHERAPY
     Route: 065
  7. CITALOPRAM [Concomitant]
     Indication: PSYCHOTHERAPY
     Route: 065
  8. MIRTAZAPIN [Concomitant]
     Indication: PSYCHOTHERAPY
     Route: 065
  9. ALIZAPRIDE [Concomitant]
     Indication: PRODUCT USED FOR UNKNOWN INDICATION
     Route: 065
  10. SPIRONOLACTONE [Concomitant]
     Indication: PRODUCT USED FOR UNKNOWN INDICATION
     Route: 065
  11. PANKREATIN [Concomitant]
     Indication: PRODUCT USED FOR UNKNOWN INDICATION
     Dosage: 2 X 10000 UNITS
     Route: 065
  12. OMEPRAZOLE [Concomitant]
     Indication: PRODUCT USED FOR UNKNOWN INDICATION
     Route: 065
  13. TIOTROPIUM BROMIDE [Concomitant]
     Indication: PRODUCT USED FOR UNKNOWN INDICATION
     Route: 065
  14. SALBUTAMOL [Concomitant]
     Indication: PRODUCT USED FOR UNKNOWN INDICATION
     Dosage: 2 PUFFS AS NEEDED
     Route: 065
  15. FORMOTEROL BECLOMETHASONE [Concomitant]
     Indication: PRODUCT USED FOR UNKNOWN INDICATION
     Dosage: 2 PUFFS THRICE A DAY
     Route: 065
  16. THEOPHYLLINE RETARD [Concomitant]
     Indication: PRODUCT USED FOR UNKNOWN INDICATION
     Route: 065

REACTIONS (8)
  - Delirium [Recovered/Resolved]
  - Drug dependence [Recovered/Resolved]
  - Personality disorder [Unknown]
  - Drug abuse [Unknown]
  - Cognitive disorder [Recovered/Resolved]
  - Hyperaesthesia [Recovered/Resolved]
  - Abdominal pain [Recovered/Resolved]
  - Anxiety [Unknown]
